FAERS Safety Report 4676468-2 (Version None)
Quarter: 2005Q2

REPORT INFORMATION
  Report Type: 
  Country: None (occurrence: None)
  Receive Date: 20050525
  Receipt Date: 20050517
  Transmission Date: 20051028
  Serious: Yes (Other)
  Sender: FDA-Public Use
  Company Number: 2005058435

PATIENT
  Age: 36 Year
  Sex: Male

DRUGS (1)
  1. BEXTRA [Suspect]
     Indication: ENDODONTIC PROCEDURE
     Dosage: 80 MG (40 MG, 2 IN 1 D), ORAL
     Route: 048
     Dates: start: 20050331, end: 20050101

REACTIONS (23)
  - ACNE [None]
  - ASTHENIA [None]
  - BLOOD PRESSURE INCREASED [None]
  - CHILLS [None]
  - DRY MOUTH [None]
  - DYSGEUSIA [None]
  - DYSKINESIA [None]
  - FACIAL PALSY [None]
  - FEELING OF BODY TEMPERATURE CHANGE [None]
  - HALLUCINATION [None]
  - HEADACHE [None]
  - HYPOAESTHESIA [None]
  - IMPAIRED WORK ABILITY [None]
  - MALAISE [None]
  - MEMORY IMPAIRMENT [None]
  - NAUSEA [None]
  - NERVOUSNESS [None]
  - ORAL DISCOMFORT [None]
  - PARAESTHESIA [None]
  - STRESS [None]
  - TREMOR [None]
  - VISUAL DISTURBANCE [None]
  - VOMITING [None]
